FAERS Safety Report 10271968 (Version 3)
Quarter: 2014Q3

REPORT INFORMATION
  Report Type: Report from Study
  Country: MX (occurrence: MX)
  Receive Date: 20140702
  Receipt Date: 20140730
  Transmission Date: 20150326
  Serious: Yes (Hospitalization)
  Sender: FDA-Public Use
  Company Number: PHHY2014MX065354

PATIENT
  Age: 25 Year
  Sex: Male

DRUGS (6)
  1. EXJADE [Suspect]
     Active Substance: DEFERASIROX
     Indication: APLASTIC ANAEMIA
     Dosage: 1.5 DF, DAILY
     Route: 048
     Dates: start: 20140506
  2. ALOGLUTAMOL [Concomitant]
     Dosage: 1 UKN, Q8H
  3. OMPRAZOLE [Concomitant]
     Active Substance: OMEPRAZOLE
     Indication: REFLUX GASTRITIS
     Dosage: 2 UKN, DAILY
  4. POVIDONE [Concomitant]
     Active Substance: POVIDONE
     Dosage: 3 UKN, DAILY
     Dates: start: 201402
  5. OMPRAZOLE [Concomitant]
     Active Substance: OMEPRAZOLE
     Indication: DYSPEPSIA
     Dosage: 1 DF (20 MG), DAILY (MORNING)
     Route: 048
  6. LEVOFLOXACIN [Concomitant]
     Active Substance: LEVOFLOXACIN
     Dosage: 1 UKN, DAILY

REACTIONS (11)
  - Ear swelling [Recovered/Resolved]
  - Urinary tract infection [Recovered/Resolved]
  - Pain [Recovered/Resolved]
  - Gingival inflammation [Recovered/Resolved]
  - Blood iron increased [Recovering/Resolving]
  - Reflux gastritis [Not Recovered/Not Resolved]
  - Pharyngeal oedema [Recovered/Resolved]
  - Dysphagia [Recovered/Resolved]
  - Dyspepsia [Not Recovered/Not Resolved]
  - Dry mouth [Recovered/Resolved]
  - Pyrexia [Recovered/Resolved]

NARRATIVE: CASE EVENT DATE: 20140512
